FAERS Safety Report 5726517-5 (Version None)
Quarter: 2008Q2

REPORT INFORMATION
  Report Type: 
  Country: None (occurrence: None)
  Receive Date: 20080502
  Receipt Date: 20080423
  Transmission Date: 20081010
  Serious: Yes (Hospitalization, Other)
  Sender: FDA-Public Use
  Company Number: PR-MERCK-0706USA00993

PATIENT
  Age: 45 Year
  Sex: Female

DRUGS (3)
  1. FOSAMAX [Suspect]
     Indication: PROPHYLAXIS
     Route: 048
     Dates: start: 20030101, end: 20040101
  2. FOSAMAX [Suspect]
     Route: 048
     Dates: start: 20041105
  3. PREMARIN [Concomitant]
     Route: 065
     Dates: start: 20000101

REACTIONS (2)
  - CHOLELITHIASIS [None]
  - OSTEONECROSIS [None]
